FAERS Safety Report 20019858 (Version 2)
Quarter: 2021Q4

REPORT INFORMATION
  Report Type: Report from Study
  Country: PL (occurrence: PL)
  Receive Date: 20211101
  Receipt Date: 20211110
  Transmission Date: 20220303
  Serious: Yes (Hospitalization)
  Sender: FDA-Public Use
  Company Number: PL-BRISTOL-MYERS SQUIBB COMPANY-BMS-2021-111856

PATIENT
  Age: 44 Year
  Sex: Female

DRUGS (8)
  1. NIVOLUMAB [Suspect]
     Active Substance: NIVOLUMAB
     Indication: Non-Hodgkin^s lymphoma
     Dosage: 240 MILLIGRAM, QCYCLE
     Route: 042
     Dates: start: 20210513, end: 20210903
  2. GEMCITABINE HYDROCHLORIDE [Suspect]
     Active Substance: GEMCITABINE HYDROCHLORIDE
     Indication: Non-Hodgkin^s lymphoma
     Dosage: 1773 MILLIGRAM, QCYCLE
     Route: 042
     Dates: start: 20210521, end: 20210910
  3. OXALIPLATIN [Suspect]
     Active Substance: OXALIPLATIN
     Indication: Non-Hodgkin^s lymphoma
     Dosage: 177 MILLIGRAM, QCYCLE
     Route: 042
     Dates: start: 20210521, end: 20210910
  4. RITUXIMAB [Suspect]
     Active Substance: RITUXIMAB
     Indication: Non-Hodgkin^s lymphoma
     Dosage: 665 MILLIGRAM, QCYCLE
     Route: 042
     Dates: start: 20210520, end: 20210909
  5. FILGRASTIM [Suspect]
     Active Substance: FILGRASTIM
     Indication: Non-Hodgkin^s lymphoma
     Dosage: UNK
     Route: 058
     Dates: start: 20210606, end: 20210917
  6. ACYCLOVIR [Concomitant]
     Active Substance: ACYCLOVIR
     Indication: Product used for unknown indication
     Dosage: 400 MILLIGRAM, BID
     Route: 048
     Dates: start: 20210504
  7. ESCITALOPRAM [Concomitant]
     Active Substance: ESCITALOPRAM OXALATE
     Indication: Product used for unknown indication
     Dosage: 5 MILLIGRAM, QD
     Route: 048
     Dates: start: 20210506
  8. HYDROXYZINUM [HYDROXYZINE HYDROCHLORIDE] [Concomitant]
     Indication: Product used for unknown indication
     Dosage: 25 MILLIGRAM, QD
     Route: 048
     Dates: start: 20210506

REACTIONS (3)
  - Jaundice [Recovering/Resolving]
  - Fatigue [Recovering/Resolving]
  - Liver function test increased [Recovering/Resolving]

NARRATIVE: CASE EVENT DATE: 20211022
